FAERS Safety Report 7098401-9 (Version None)
Quarter: 2010Q4

REPORT INFORMATION
  Report Type: 
  Country: None (occurrence: None)
  Receive Date: 20101112
  Receipt Date: 20101103
  Transmission Date: 20110411
  Serious: Yes (Other)
  Sender: FDA-Public Use
  Company Number: CA-ASTRAZENECA-2010SE52473

PATIENT
  Age: 25 Year
  Sex: Female

DRUGS (5)
  1. SEROQUEL XR [Suspect]
     Route: 048
     Dates: start: 20100410
  2. WELLBUTRIN [Concomitant]
     Route: 048
     Dates: start: 20100405
  3. CLINDOXYL [Concomitant]
     Route: 061
     Dates: start: 20090604
  4. RIVOTRIL [Concomitant]
     Route: 048
     Dates: start: 20100405
  5. TOPAMAX [Concomitant]
     Route: 048
     Dates: start: 20100623

REACTIONS (2)
  - BLOOD DISORDER [None]
  - WHITE BLOOD CELL COUNT DECREASED [None]
